FAERS Safety Report 20328253 (Version 6)
Quarter: 2024Q2

REPORT INFORMATION
  Report Type: Spontaneous
  Country: CA (occurrence: CA)
  Receive Date: 20220112
  Receipt Date: 20240607
  Transmission Date: 20240716
  Serious: Yes (Other)
  Sender: FDA-Public Use
  Company Number: CA-PFIZER INC-2021069234

PATIENT
  Age: 37 Year
  Sex: Male
  Weight: 82 kg

DRUGS (8)
  1. RUXIENCE [Suspect]
     Active Substance: RITUXIMAB-PVVR
     Indication: Ocular pemphigoid
     Dosage: 1 G (1000 MG, RECEIVED DOSE 1)
     Route: 042
     Dates: start: 20201223, end: 20201223
  2. RUXIENCE [Suspect]
     Active Substance: RITUXIMAB-PVVR
     Dosage: 1000 MG DOSE 2
     Route: 042
     Dates: start: 20210225, end: 20210225
  3. RUXIENCE [Suspect]
     Active Substance: RITUXIMAB-PVVR
     Dosage: 1000 MG DAY 1AND 15 (EVERY 6 MONTHS)
     Route: 042
     Dates: start: 20210623, end: 20210707
  4. RUXIENCE [Suspect]
     Active Substance: RITUXIMAB-PVVR
     Dosage: 1000 MG DAY 1AND 15 (EVERY 6 MONTHS)
     Route: 042
     Dates: start: 20220216, end: 20220303
  5. RUXIENCE [Suspect]
     Active Substance: RITUXIMAB-PVVR
     Dosage: 1000 MG DAY 1AND 15 (EVERY 6 MONTHS)
     Route: 042
     Dates: start: 20221115, end: 20221129
  6. RUXIENCE [Suspect]
     Active Substance: RITUXIMAB-PVVR
     Dosage: 1 G X 2- 2 WEEKS APART
     Route: 042
     Dates: start: 20231006, end: 20231020
  7. RUXIENCE [Suspect]
     Active Substance: RITUXIMAB-PVVR
     Dosage: 1000 MG DAY 1 AND DAY 15 EVERY 6 MONTHS (1000MG, SUBSEQUENT DAY 1, 7 MONTHS)
     Route: 042
     Dates: start: 20240605
  8. PREDNISONE [Concomitant]
     Active Substance: PREDNISONE
     Dosage: UNK

REACTIONS (12)
  - Keratoplasty [Unknown]
  - Blindness unilateral [Not Recovered/Not Resolved]
  - Corneal opacity [Not Recovered/Not Resolved]
  - Off label use [Unknown]
  - Inappropriate schedule of product administration [Unknown]
  - Weight decreased [Unknown]
  - Eye inflammation [Unknown]
  - Oral disorder [Recovered/Resolved]
  - Visual impairment [Not Recovered/Not Resolved]
  - Eye pain [Not Recovered/Not Resolved]
  - Conjunctival scar [Not Recovered/Not Resolved]
  - Trichiasis [Not Recovered/Not Resolved]

NARRATIVE: CASE EVENT DATE: 20210623
